FAERS Safety Report 20838685 (Version 1)
Quarter: 2022Q2

REPORT INFORMATION
  Report Type: Report from Study
  Country: BR (occurrence: BR)
  Receive Date: 20220517
  Receipt Date: 20220517
  Transmission Date: 20220721
  Serious: Yes (Death, Other)
  Sender: FDA-Public Use
  Company Number: BR-NOVARTISPH-NVSC2022BR112936

PATIENT
  Age: 80 Year
  Sex: Male

DRUGS (1)
  1. BRINZOLAMIDE\TIMOLOL MALEATE [Suspect]
     Active Substance: BRINZOLAMIDE\TIMOLOL MALEATE
     Indication: Product used for unknown indication
     Dosage: UNK (START DATE: A LONG TIME AGO)
     Route: 065

REACTIONS (2)
  - Death [Fatal]
  - Gastrointestinal carcinoma [Unknown]

NARRATIVE: CASE EVENT DATE: 20201217
